FAERS Safety Report 12182568 (Version 2)
Quarter: 2016Q1

REPORT INFORMATION
  Report Type: Report from Study
  Country: US (occurrence: US)
  Receive Date: 20160316
  Receipt Date: 20160330
  Transmission Date: 20160526
  Serious: Yes (Hospitalization, Other)
  Sender: FDA-Public Use
  Company Number: US-AMGEN-USASL2016031275

PATIENT
  Age: 72 Year
  Sex: Female

DRUGS (2)
  1. ENBREL [Suspect]
     Active Substance: ETANERCEPT
     Indication: RHEUMATOID ARTHRITIS
     Dosage: UNK
     Route: 065
  2. ENBREL [Suspect]
     Active Substance: ETANERCEPT
     Dosage: 50 MG, QWK
     Route: 065
     Dates: end: 201512

REACTIONS (10)
  - Ill-defined disorder [Unknown]
  - Pancreatitis [Unknown]
  - Memory impairment [Unknown]
  - Gait disturbance [Unknown]
  - Malaise [Unknown]
  - Vomiting [Unknown]
  - Living in residential institution [Unknown]
  - Intestinal obstruction [Unknown]
  - Arthritis [Unknown]
  - Incoherent [Unknown]

NARRATIVE: CASE EVENT DATE: 20151221
